FAERS Safety Report 10210083 (Version 1)
Quarter: 2014Q2

REPORT INFORMATION
  Report Type: Report from Study
  Country: US (occurrence: US)
  Receive Date: 20140602
  Receipt Date: 20140602
  Transmission Date: 20141212
  Serious: Yes (Other)
  Sender: FDA-Public Use
  Company Number: US-AMGEN INC.-USACT2014039724

PATIENT
  Age: 47 Year
  Sex: Female

DRUGS (7)
  1. PEGFILGRASTIM [Suspect]
     Indication: PRODUCT USED FOR UNKNOWN INDICATION
     Dosage: 6 MG, CYCLICAL, ON DAY 4 UNTIL RECOVERY OF GRANULOCYTE COUNT
     Route: 058
     Dates: start: 20130401
  2. INOTUZUMAB OZOGAMICIN [Concomitant]
     Indication: ACUTE LYMPHOCYTIC LEUKAEMIA
     Dosage: 1.3 MG/M2, CYCLICAL (OVER 1 HOUR ON DAY 3)
     Route: 042
     Dates: start: 20130401
  3. INOTUZUMAB OZOGAMICIN [Concomitant]
     Dosage: CYCLICAL (ON DAY 2 OR 3 OF CYCLES 2 AND 4 ONLY)
     Route: 042
     Dates: start: 20130401
  4. ARA-C [Concomitant]
     Indication: PRODUCT USED FOR UNKNOWN INDICATION
     Dosage: 500 MG/M2, CYCLICAL (OVER 3 HOURS TWICE A DAYX4DOSES ON DAY 2 AND 3)
     Route: 042
     Dates: start: 20130401
  5. RITUXIMAB [Concomitant]
     Indication: PRODUCT USED FOR UNKNOWN INDICATION
     Dosage: 375 MG/M2, CYCLICAL (ON DAY 2 AND 8 OF CYCLES 2 AND 4)
     Route: 042
     Dates: start: 20130401
  6. METHOTREXATE [Concomitant]
     Indication: ACUTE LYMPHOCYTIC LEUKAEMIA
     Dosage: 50 MG/M2, CYCLICAL (OVER 2 HOURS ON DAY 1)
     Route: 042
     Dates: start: 20130401
  7. METHOTREXATE [Concomitant]
     Dosage: 200 MG/M2, CYCLICAL (OVER 22 HOURS ON DAY 1)
     Route: 041
     Dates: start: 20130401

REACTIONS (1)
  - Febrile neutropenia [Recovered/Resolved]
